FAERS Safety Report 8493192-9 (Version None)
Quarter: 2012Q3

REPORT INFORMATION
  Report Type: 
  Country: None (occurrence: None)
  Receive Date: 20120706
  Receipt Date: 20120705
  Transmission Date: 20120928
  Serious: No
  Sender: FDA-Public Use
  Company Number: US-PFIZER INC-2012161700

PATIENT
  Sex: Female
  Weight: 78.912 kg

DRUGS (5)
  1. LYRICA [Suspect]
     Indication: MULTIPLE SCLEROSIS
     Dosage: 100 MG, 3X/DAY
     Route: 048
     Dates: start: 20120601
  2. IRON [Concomitant]
     Dosage: UNK, 1X/DAY
  3. LYRICA [Suspect]
     Indication: NEURALGIA
  4. LEVETIRACETAM [Concomitant]
     Indication: CONVULSION
     Dosage: UNK, 2X\DAY
  5. SYNTHROID [Concomitant]
     Dosage: UNK, 1X/DAY

REACTIONS (2)
  - FATIGUE [None]
  - WEIGHT INCREASED [None]
